FAERS Safety Report 19496636 (Version 1)
Quarter: 2021Q3

REPORT INFORMATION
  Report Type: Spontaneous
  Country: US (occurrence: US)
  Receive Date: 20210703
  Receipt Date: 20210703
  Transmission Date: 20211014
  Serious: No
  Sender: FDA-Public Use
  Company Number: None

PATIENT
  Age: 52 Year
  Sex: Female
  Weight: 128.25 kg

DRUGS (12)
  1. MELOXICAM 15 MG [Suspect]
     Active Substance: MELOXICAM
     Indication: PERIPHERAL SWELLING
     Dosage: ?          QUANTITY:1 TABLET(S);?
     Route: 048
     Dates: start: 20210630, end: 20210702
  2. IRON [Concomitant]
     Active Substance: IRON
  3. SILENCIL [Concomitant]
  4. ZINC. [Concomitant]
     Active Substance: ZINC
  5. CBD OIL [Concomitant]
     Active Substance: CANNABIDIOL\HERBALS
  6. VITAMIN C [Concomitant]
     Active Substance: ASCORBIC ACID
  7. LYSINE [Concomitant]
     Active Substance: LYSINE
  8. MAGNESIUM [Concomitant]
     Active Substance: MAGNESIUM
  9. VITAMIN D3 [Concomitant]
     Active Substance: CHOLECALCIFEROL
  10. MELOXICAM 15 MG [Suspect]
     Active Substance: MELOXICAM
     Indication: PAIN IN EXTREMITY
     Dosage: ?          QUANTITY:1 TABLET(S);?
     Route: 048
     Dates: start: 20210630, end: 20210702
  11. ROLLING  KNEELING WALKER [Concomitant]
  12. VITAMIN B12 [Concomitant]
     Active Substance: CYANOCOBALAMIN

REACTIONS (11)
  - Swelling face [None]
  - Blister [None]
  - Eye swelling [None]
  - Lip swelling [None]
  - Vision blurred [None]
  - Ear pruritus [None]
  - Insomnia [None]
  - Tremor [None]
  - Throat irritation [None]
  - Dysphonia [None]
  - Ear swelling [None]

NARRATIVE: CASE EVENT DATE: 20210630
